FAERS Safety Report 11848722 (Version 1)
Quarter: 2015Q4

REPORT INFORMATION
  Report Type: Spontaneous
  Country: US (occurrence: US)
  Receive Date: 20151218
  Receipt Date: 20151218
  Transmission Date: 20160305
  Serious: No
  Sender: FDA-Public Use
  Company Number: US-ASTRAZENECA-2015SF27796

PATIENT
  Age: 66 Year
  Sex: Female

DRUGS (15)
  1. VITAMIN D3 [Concomitant]
     Active Substance: CHOLECALCIFEROL
  2. LACTOBACILLUS ACIDOPHILUS [Concomitant]
     Active Substance: LACTOBACILLUS ACIDOPHILUS
  3. ALLOPURINOL. [Concomitant]
     Active Substance: ALLOPURINOL
  4. IBRANCE [Suspect]
     Active Substance: PALBOCICLIB
     Indication: METASTASES TO BONE
     Route: 065
     Dates: start: 20151107
  5. FASLODEX [Suspect]
     Active Substance: FULVESTRANT
     Route: 030
  6. VITAMIN B COMPLEX [Concomitant]
     Active Substance: CYANOCOBALAMIN\DEXPANTHENOL\NIACINAMIDE\PYRIDOXINE HYDROCHLORIDE\RIBOFLAVIN 5^-PHOSPHATE SODIUM\THIAMINE HYDROCHLORIDE\VITAMIN B COMPLEX
  7. GAVISCON [Concomitant]
     Active Substance: ALUMINUM HYDROXIDE\MAGNESIUM CARBONATE
  8. ANASTROZOLE. [Concomitant]
     Active Substance: ANASTROZOLE
  9. PRAVASTATIN SODIUM. [Concomitant]
     Active Substance: PRAVASTATIN SODIUM
  10. VITAMIN K2 [Concomitant]
     Active Substance: MENAQUINONE 6
  11. HYDROCHLOROTHIAZIDE LOSARTAN POTASSIUM [Concomitant]
     Indication: PAIN
  12. IBUPROFEN. [Concomitant]
     Active Substance: IBUPROFEN
  13. CLARITIN [Concomitant]
     Active Substance: LORATADINE
  14. XGEVA [Concomitant]
     Active Substance: DENOSUMAB
  15. LISINOPRIL. [Concomitant]
     Active Substance: LISINOPRIL

REACTIONS (4)
  - Vertebral lesion [Not Recovered/Not Resolved]
  - Neuropathy peripheral [Unknown]
  - Fatigue [Unknown]
  - Bone lesion [Unknown]

NARRATIVE: CASE EVENT DATE: 2013
